FAERS Safety Report 16678439 (Version 1)
Quarter: 2019Q3

REPORT INFORMATION
  Report Type: Spontaneous
  Country: US (occurrence: US)
  Receive Date: 20190807
  Receipt Date: 20190807
  Transmission Date: 20191004
  Serious: No
  Sender: FDA-Public Use
  Company Number: US-GLAXOSMITHKLINE-US2019138459

PATIENT
  Sex: Female

DRUGS (1)
  1. VOLTAREN [Suspect]
     Active Substance: DICLOFENAC SODIUM
     Indication: PRODUCT USED FOR UNKNOWN INDICATION
     Dosage: USED IT TWICE A DAY ON THE KNEE AND ON THE HIP

REACTIONS (7)
  - Off label use [Unknown]
  - Product administered at inappropriate site [Unknown]
  - Contraindicated product administered [Unknown]
  - Throat tightness [Recovered/Resolved]
  - Cough [Recovered/Resolved]
  - Nasal congestion [Recovered/Resolved]
  - Inappropriate schedule of product administration [Unknown]
